FAERS Safety Report 26189813 (Version 1)
Quarter: 2025Q4

REPORT INFORMATION
  Report Type: Spontaneous
  Country: EU (occurrence: EU)
  Receive Date: 20251223
  Receipt Date: 20251223
  Transmission Date: 20260118
  Serious: Yes (Other)
  Sender: ROCHE
  Company Number: EU-ROCHE-10000458786

PATIENT
  Sex: Male

DRUGS (2)
  1. OCREVUS [Suspect]
     Active Substance: OCRELIZUMAB
     Indication: Multiple sclerosis
  2. AMANTADINE [Concomitant]
     Active Substance: AMANTADINE

REACTIONS (3)
  - Arrhythmia [Unknown]
  - Electrocardiogram QT prolonged [Unknown]
  - Left atrial enlargement [Unknown]
